FAERS Safety Report 7368247-2 (Version None)
Quarter: 2011Q1

REPORT INFORMATION
  Report Type: 
  Country: None (occurrence: None)
  Receive Date: 20110311
  Receipt Date: 20110207
  Transmission Date: 20110831
  Serious: Yes (Other)
  Sender: FDA-Public Use
  Company Number: 201110034

PATIENT
  Sex: Male

DRUGS (1)
  1. LIORESAL [Suspect]
     Dosage: SEE B5 MCG, DAILY, INTRATHECAL
     Route: 037

REACTIONS (4)
  - PRURITUS [None]
  - CLONUS [None]
  - WITHDRAWAL SYNDROME [None]
  - IRRITABILITY [None]
